FAERS Safety Report 9339316 (Version 4)
Quarter: 2013Q3

REPORT INFORMATION
  Report Type: Report from Study
  Country: AU (occurrence: AU)
  Receive Date: 20130610
  Receipt Date: 20130910
  Transmission Date: 20140515
  Serious: Yes (Death, Hospitalization, Other)
  Sender: FDA-Public Use
  Company Number: PHHY2013AU058057

PATIENT
  Sex: Female

DRUGS (2)
  1. CLOZARIL [Suspect]
     Indication: SCHIZOPHRENIA
     Dosage: 275 MG, UNK
     Dates: start: 19960527
  2. CIPRAMIL                                /NET/ [Concomitant]
     Indication: DEPRESSION
     Dosage: 20 MG, QD DAILY
     Route: 048

REACTIONS (5)
  - Breast cancer metastatic [Fatal]
  - Neoplasm malignant [Fatal]
  - Pathological fracture [Unknown]
  - Dysphagia [Unknown]
  - Hepatic enzyme increased [Unknown]
